FAERS Safety Report 25845539 (Version 1)
Quarter: 2025Q3

REPORT INFORMATION
  Report Type: Spontaneous
  Country: US (occurrence: US)
  Receive Date: 20250925
  Receipt Date: 20250925
  Transmission Date: 20251021
  Serious: Yes (Death)
  Sender: RECKITT BENCKISER
  Company Number: US-Indivior Limited-INDV-166475-2025

PATIENT

DRUGS (1)
  1. OPVEE [Suspect]
     Active Substance: NALMEFENE HYDROCHLORIDE
     Indication: Overdose
     Route: 045

REACTIONS (1)
  - Therapy non-responder [Fatal]
